FAERS Safety Report 5338440-9 (Version None)
Quarter: 2007Q2

REPORT INFORMATION
  Report Type: 
  Country: None (occurrence: None)
  Receive Date: 20070322
  Receipt Date: 20060705
  Transmission Date: 20071010
  Serious: Yes (Other)
  Sender: FDA-Public Use
  Company Number: 200612207BCC

PATIENT
  Sex: Male
  Weight: 78.0187 kg

DRUGS (7)
  1. ALEVE (CAPLET) [Suspect]
     Indication: ARTHRITIS
     Dosage: 220 MG, ONCE, ORAL
     Route: 048
     Dates: start: 20051101
  2. ALEVE (CAPLET) [Suspect]
     Indication: BACK PAIN
     Dosage: 220 MG, ONCE, ORAL
     Route: 048
     Dates: start: 20051101
  3. ATENOLOL [Concomitant]
  4. ZYRTEC [Concomitant]
  5. TRIAMTERENE [Concomitant]
  6. GEMFIBROZIL [Concomitant]
  7. COZAAR [Concomitant]

REACTIONS (1)
  - HYPERTENSION [None]
